FAERS Safety Report 7107397-2 (Version None)
Quarter: 2010Q4

REPORT INFORMATION
  Report Type: 
  Country: None (occurrence: None)
  Receive Date: 20101111
  Receipt Date: 20101111
  Transmission Date: 20110411
  Serious: No
  Sender: FDA-Public Use
  Company Number: None

PATIENT
  Age: 17 Year
  Sex: Female
  Weight: 120.4 kg

DRUGS (2)
  1. ABILIFY [Suspect]
     Indication: ANXIETY
     Dosage: 5 MG DAILY PO
     Route: 048
     Dates: start: 20100528, end: 20100601
  2. ABILIFY [Suspect]
     Indication: DEPRESSION
     Dosage: 5 MG DAILY PO
     Route: 048
     Dates: start: 20100528, end: 20100601

REACTIONS (1)
  - DYSTONIA [None]
